FAERS Safety Report 7374638-6 (Version None)
Quarter: 2011Q1

REPORT INFORMATION
  Report Type: 
  Country: None (occurrence: None)
  Receive Date: 20110325
  Receipt Date: 20100602
  Transmission Date: 20110831
  Serious: No
  Sender: FDA-Public Use
  Company Number: US-MYLANLABS-2010S1009881

PATIENT
  Sex: Male

DRUGS (4)
  1. FENTANYL-100 [Suspect]
     Indication: PAIN
     Dosage: CHANGED Q36H
     Route: 062
     Dates: start: 20080101
  2. ZANTAC [Concomitant]
  3. FLEXERIL [Concomitant]
  4. NEXIUM [Concomitant]

REACTIONS (3)
  - PAIN [None]
  - DRUG INEFFECTIVE [None]
  - DRUG SCREEN NEGATIVE [None]
